FAERS Safety Report 14564605 (Version 2)
Quarter: 2018Q1

REPORT INFORMATION
  Report Type: Report from Study
  Country: None (occurrence: IL)
  Receive Date: 20180222
  Receipt Date: 20180305
  Transmission Date: 20180509
  Serious: Yes (Hospitalization)
  Sender: FDA-Public Use
  Company Number: IL-ABBVIE-17K-082-2199883-00

PATIENT
  Sex: Male

DRUGS (2)
  1. DUODOPA [Suspect]
     Active Substance: CARBIDOPA\LEVODOPA
     Indication: PARKINSON^S DISEASE
     Dosage: CURRENT MORNING- 14 ML, FIXED RATE- 2.7 ML/HOUR, CURRENT ED- 1 ML
     Route: 050
     Dates: start: 20171126
  2. DUODOPA [Suspect]
     Active Substance: CARBIDOPA\LEVODOPA
     Dosage: MORNING DOSE 14ML,?CONTINUOUS DOSE 2.7ML/HOUR,?EXTRA DOSE 1ML.
     Route: 050

REACTIONS (5)
  - Freezing phenomenon [Recovering/Resolving]
  - Balance disorder [Unknown]
  - Blood pressure orthostatic decreased [Unknown]
  - Fall [Recovering/Resolving]
  - Fall [Recovered/Resolved]

NARRATIVE: CASE EVENT DATE: 2017
